FAERS Safety Report 5973695-9 (Version None)
Quarter: 2008Q4

REPORT INFORMATION
  Report Type: 
  Country: None (occurrence: None)
  Receive Date: 20081201
  Receipt Date: 20081124
  Transmission Date: 20090506
  Serious: Yes (Other)
  Sender: FDA-Public Use
  Company Number: US-ROXANE LABORATORIES, INC.-2008-RO-00273RO

PATIENT
  Age: 26 Year
  Sex: Female

DRUGS (6)
  1. LIDOCAINE [Suspect]
     Indication: EPIDURAL TEST DOSE
     Dosage: 2ML
     Route: 008
  2. LIDOCAINE [Suspect]
     Dosage: 5ML
     Route: 008
  3. OXYGEN [Concomitant]
     Indication: SUPPORTIVE CARE
  4. VASOPRESSORS [Concomitant]
     Indication: SUPPORTIVE CARE
  5. FLUIDS [Concomitant]
     Indication: SUPPORTIVE CARE
  6. PERSERVATIVE-FREE NORMAL SALINE [Concomitant]
     Indication: SENSORIMOTOR DISORDER
     Route: 037

REACTIONS (4)
  - CARDIOVASCULAR DISORDER [None]
  - INCORRECT DOSE ADMINISTERED [None]
  - RESPIRATORY DEPRESSION [None]
  - SENSORIMOTOR DISORDER [None]
